FAERS Safety Report 18252553 (Version 1)
Quarter: 2020Q3

REPORT INFORMATION
  Report Type: Spontaneous
  Country: US (occurrence: US)
  Receive Date: 20200910
  Receipt Date: 20200910
  Transmission Date: 20201103
  Serious: Yes (Hospitalization)
  Sender: FDA-Public Use
  Company Number: None

PATIENT
  Age: 56 Year
  Sex: Female
  Weight: 84.15 kg

DRUGS (13)
  1. IBRANCE [Suspect]
     Active Substance: PALBOCICLIB
     Indication: BREAST CANCER
     Route: 048
     Dates: start: 20200522
  2. CETIRIZINE [Concomitant]
     Active Substance: CETIRIZINE HYDROCHLORIDE
  3. XGEVA [Concomitant]
     Active Substance: DENOSUMAB
  4. AMLODIPINE10MG [Concomitant]
  5. ENOXAPARIN [Concomitant]
     Active Substance: ENOXAPARIN
  6. VITAMIN D 1.25 MG [Concomitant]
  7. ACETAMINOPHEN 325 MG [Concomitant]
     Active Substance: ACETAMINOPHEN
  8. TIZANIDINE 4MG [Concomitant]
     Active Substance: TIZANIDINE
  9. LIDOCAINE. [Concomitant]
     Active Substance: LIDOCAINE
  10. LYRICA [Concomitant]
     Active Substance: PREGABALIN
  11. DEXAMETHASONE 4 MG [Concomitant]
     Active Substance: DEXAMETHASONE
  12. PRILOSEC [Concomitant]
     Active Substance: OMEPRAZOLE MAGNESIUM
  13. FASLODEX [Concomitant]
     Active Substance: FULVESTRANT

REACTIONS (1)
  - Abdominal pain upper [None]
